FAERS Safety Report 14471385 (Version 1)
Quarter: 2018Q1

REPORT INFORMATION
  Report Type: Spontaneous
  Country: US (occurrence: US)
  Receive Date: 20180131
  Receipt Date: 20180131
  Transmission Date: 20180509
  Serious: Yes (Disabling)
  Sender: FDA-Public Use
  Company Number: None

PATIENT
  Age: 70 Year
  Sex: Female
  Weight: 76.2 kg

DRUGS (1)
  1. XARELTO [Suspect]
     Active Substance: RIVAROXABAN
     Indication: EYE HAEMORRHAGE
     Route: 048
     Dates: start: 20171004, end: 20180122

REACTIONS (1)
  - Blindness [None]

NARRATIVE: CASE EVENT DATE: 20171212
